FAERS Safety Report 9293055 (Version 1)
Quarter: 2013Q2

REPORT INFORMATION
  Report Type: Spontaneous
  Country: US (occurrence: None)
  Receive Date: 20130515
  Receipt Date: 20130515
  Transmission Date: 20140414
  Serious: No
  Sender: FDA-Public Use
  Company Number: None

PATIENT
  Sex: 0

DRUGS (1)
  1. AVASTIN [Suspect]

REACTIONS (8)
  - Paraesthesia [None]
  - Chills [None]
  - Night sweats [None]
  - Fatigue [None]
  - Pruritus [None]
  - Rash [None]
  - Hypoaesthesia oral [None]
  - Hypoaesthesia oral [None]
